FAERS Safety Report 8390671-X (Version None)
Quarter: 2012Q2

REPORT INFORMATION
  Report Type: 
  Country: None (occurrence: None)
  Receive Date: 20120529
  Receipt Date: 20120518
  Transmission Date: 20120825
  Serious: Yes (Other)
  Sender: FDA-Public Use
  Company Number: DE-BRISTOL-MYERS SQUIBB COMPANY-16606121

PATIENT

DRUGS (1)
  1. COUMADIN [Suspect]

REACTIONS (1)
  - SURGERY [None]
